FAERS Safety Report 14245241 (Version 2)
Quarter: 2018Q1

REPORT INFORMATION
  Report Type: Report from Study
  Country: US (occurrence: US)
  Receive Date: 20171202
  Receipt Date: 20180110
  Transmission Date: 20180508
  Serious: No
  Sender: FDA-Public Use
  Company Number: US-009507513-1711USA004953

PATIENT
  Age: 77 Year
  Sex: Female

DRUGS (5)
  1. ZETIA [Suspect]
     Active Substance: EZETIMIBE
     Dosage: ONE TABLET (10 MG), EVERYNIGHT
     Route: 048
     Dates: start: 2017
  2. COMBIVENT [Concomitant]
     Active Substance: ALBUTEROL SULFATE\IPRATROPIUM BROMIDE
     Dosage: UNK
  3. EZETIMIBE. [Suspect]
     Active Substance: EZETIMIBE
     Dosage: UNK
     Dates: start: 20170810, end: 2017
  4. WARFARIN [Concomitant]
     Active Substance: WARFARIN
     Dosage: UNK
  5. ZETIA [Suspect]
     Active Substance: EZETIMIBE
     Indication: BLOOD CHOLESTEROL INCREASED
     Dosage: ONE TABLET (10 MG), EVERYNIGHT
     Route: 048
     Dates: end: 20170810

REACTIONS (5)
  - Chest pain [Recovering/Resolving]
  - Myalgia [Recovering/Resolving]
  - Hypertension [Recovering/Resolving]
  - Bone pain [Recovering/Resolving]
  - Malaise [Recovering/Resolving]

NARRATIVE: CASE EVENT DATE: 201708
